FAERS Safety Report 13717030 (Version 1)
Quarter: 2017Q3

REPORT INFORMATION
  Report Type: Spontaneous
  Country: US (occurrence: US)
  Receive Date: 20170704
  Receipt Date: 20170704
  Transmission Date: 20171127
  Serious: Yes (Disabling)
  Sender: FDA-Public Use
  Company Number: None

PATIENT
  Age: 93 Year
  Sex: Female

DRUGS (1)
  1. PROCARDIA XL [Suspect]
     Active Substance: NIFEDIPINE

REACTIONS (4)
  - Postural orthostatic tachycardia syndrome [None]
  - Hallucination [None]
  - Dementia [None]
  - Dizziness [None]

NARRATIVE: CASE EVENT DATE: 20170105
